FAERS Safety Report 7152790-5 (Version None)
Quarter: 2010Q4

REPORT INFORMATION
  Report Type: 
  Country: None (occurrence: None)
  Receive Date: 20101213
  Receipt Date: 20101201
  Transmission Date: 20110411
  Serious: Yes (Other)
  Sender: FDA-Public Use
  Company Number: CH-SANOFI-AVENTIS-2010SA073189

PATIENT
  Age: 79 Year
  Sex: Female

DRUGS (6)
  1. STILNOX [Suspect]
     Dosage: LONG TERM.
     Route: 048
  2. COZAAR [Suspect]
     Dosage: LONG TERM.
     Route: 048
  3. EUTHYROX [Suspect]
     Dosage: LONG TERM.
     Route: 048
  4. TORASEMIDE [Concomitant]
     Dosage: LONG TERM
     Route: 048
  5. TRAMAL [Concomitant]
     Route: 065
  6. FLECTOR [Concomitant]
     Route: 065

REACTIONS (1)
  - AGEUSIA [None]
